FAERS Safety Report 23638868 (Version 1)
Quarter: 2024Q1

REPORT INFORMATION
  Report Type: Spontaneous
  Country: ES (occurrence: None)
  Receive Date: 20240315
  Receipt Date: 20240315
  Transmission Date: 20240410
  Serious: Yes (Hospitalization)
  Sender: FDA-Public Use
  Company Number: 2024A057926

PATIENT
  Age: 79 Year
  Sex: Female

DRUGS (3)
  1. QUETIAPINE [Interacting]
     Active Substance: QUETIAPINE
     Indication: Schizoaffective disorder
     Route: 048
     Dates: start: 2014, end: 20230428
  2. ARIPIPRAZOLE [Interacting]
     Active Substance: ARIPIPRAZOLE
     Indication: Mania
     Dosage: 1-0-0
     Route: 048
     Dates: start: 20230331, end: 20230428
  3. HALOPERIDOL [Interacting]
     Active Substance: HALOPERIDOL
     Indication: Mania
     Dosage: 20-20-20
     Route: 048
     Dates: start: 20230331, end: 20230424

REACTIONS (4)
  - Hyperreflexia [Recovered/Resolved]
  - Hyperhidrosis [Recovered/Resolved]
  - Muscle rigidity [Recovered/Resolved]
  - Blood creatine phosphokinase increased [Recovered/Resolved]

NARRATIVE: CASE EVENT DATE: 20230420
